FAERS Safety Report 7514889 (Version 2)
Quarter: 2024Q3

REPORT INFORMATION
  Report Type: Spontaneous
  Country: US (occurrence: US)
  Receive Date: 20100731
  Receipt Date: 20240917
  Transmission Date: 20241016
  Serious: No
  Sender: MYLAN
  Company Number: US-PFIZER INC-2009171626

PATIENT
  Sex: Male

DRUGS (1)
  1. LIPITOR [Suspect]
     Active Substance: ATORVASTATIN CALCIUM
     Indication: Product used for unknown indication
     Dosage: 20 MILLIGRAM
     Route: 065
     Dates: start: 2009

REACTIONS (3)
  - Sinus disorder [Unknown]
  - Dyspnoea [Unknown]
  - Sinonasal obstruction [Unknown]

NARRATIVE: CASE EVENT DATE: 20090101
